FAERS Safety Report 17475303 (Version 14)
Quarter: 2022Q4

REPORT INFORMATION
  Report Type: Spontaneous
  Country: US (occurrence: US)
  Receive Date: 20200228
  Receipt Date: 20221227
  Transmission Date: 20230112
  Serious: No
  Sender: FDA-Public Use
  Company Number: US-PFIZER INC-2015100286

PATIENT
  Age: 74 Year
  Sex: Female
  Weight: 63 kg

DRUGS (20)
  1. PREMPRO [Suspect]
     Active Substance: ESTROGENS, CONJUGATED\MEDROXYPROGESTERONE ACETATE
     Indication: Hot flush
     Dosage: 1 DF, ONCE A DAY (1 TAB PO QD) (STRENGTH: 0.3 MG CE/1.5 MG MPA)
     Route: 048
  2. PREMPRO [Suspect]
     Active Substance: ESTROGENS, CONJUGATED\MEDROXYPROGESTERONE ACETATE
     Indication: Menopausal symptoms
     Dosage: 0.3 MG, 1X/DAY
     Route: 048
     Dates: end: 201912
  3. PREMPRO [Suspect]
     Active Substance: ESTROGENS, CONJUGATED\MEDROXYPROGESTERONE ACETATE
     Dosage: 1 DF, 1X/DAY (0.3 MG/1.5 MG, TABLET, ONCE DAILY)
     Route: 048
     Dates: end: 2022
  4. ACETAMINOPHEN [Concomitant]
     Active Substance: ACETAMINOPHEN
     Dosage: 325 MG, 1X/DAY
     Route: 048
  5. ALBUTEROL [Concomitant]
     Active Substance: ALBUTEROL
     Indication: Wheezing
     Dosage: 2 DF, AS NEEDED ( 2 PUFF INNHALED EVERY 6 HOURS AS NEEDED FOR WHEEZE )
     Route: 055
  6. CALTRATE PLUS-D [Concomitant]
     Dosage: UNK, DAILY(CALCIUM CARBONATE-600/COLECALCIFEROL-400/EVERY DAY)
     Route: 048
  7. FISH OIL [Concomitant]
     Active Substance: FISH OIL
     Dosage: 1000 MG, DAILY(EVERY DAY)
     Route: 048
  8. FOLIC ACID [Concomitant]
     Active Substance: FOLIC ACID
     Dosage: 1 MG, DAILY (EVERY DAY)
     Route: 048
  9. VYTONE [Concomitant]
     Active Substance: HYDROCORTISONE ACETATE\IODOQUINOL
     Dosage: UNK, DAILY(1 %-1 % CREAM (G) TOPICAL EVERY DAY)
     Route: 061
  10. JINTELI [Concomitant]
     Active Substance: ETHINYL ESTRADIOL\NORETHINDRONE ACETATE
     Dosage: UNK, DAILY(ETHINYLESTRADIOL-1MG/NORETHISTERONE ACETATE-5 MG)/(EVERY DAY X 90 DAYS)
     Route: 048
  11. LIPITOR [Concomitant]
     Active Substance: ATORVASTATIN CALCIUM
     Dosage: UNK, ALTERNATE DAY (10 MG TABLET TAKE 0.5 BY MOUTH AS DIRECTED, TAKING 1/2 ALT WITH1TAB AT BEDTIME)
     Route: 048
  12. MECLIZINE HYDROCHLORIDE [Concomitant]
     Active Substance: MECLIZINE HYDROCHLORIDE
     Indication: Dizziness
     Dosage: 25 MG, AS NEEDED (25 MG TABLET TAKE 1 BY MOUTH 3 TIMES A DAY AS NEEDED )
     Route: 048
  13. METOCLOPRAMIDE HYDROCHLORIDE [Concomitant]
     Active Substance: METOCLOPRAMIDE HYDROCHLORIDE
     Indication: Nausea
     Dosage: 10 MG, AS NEEDED((10 MG TABLET TAKE 1) BY MOUTH 4 TIMES A DAY BEFORE MEALS AND AT BEDTIME AS NEEDED)
     Route: 048
  14. PRILOSEC [Concomitant]
     Active Substance: OMEPRAZOLE MAGNESIUM
     Dosage: 20 MG, DAILY(20 MG (20MG CAPSULE DR TAKE 1) BY MOUTH EVERY DAY )
     Route: 048
  15. SUCRALFATE [Concomitant]
     Active Substance: SUCRALFATE
     Dosage: 1 G, 4X/DAY
     Route: 048
  16. SYMBICORT [Concomitant]
     Active Substance: BUDESONIDE\FORMOTEROL FUMARATE DIHYDRATE
     Dosage: 2 DF, 2X/DAY (BUDESONIDE, (2 PUFF (BUDESONIDE-80/ FORMOTEROL FUMARATE-4.5 MCG HFA AER AD) INHALED T)
  17. TOPIRAMATE [Concomitant]
     Active Substance: TOPIRAMATE
     Dosage: 100 MG, 2X/DAY((100MG TABLET TAKE 1) BY MOUTH TWICE A DAY X 90 DAYS)
     Route: 048
  18. TYLENOL WITH CODEINE [Concomitant]
     Active Substance: ACETAMINOPHEN\CODEINE PHOSPHATE
     Indication: Pain
     Dosage: UNK, AS NEEDED (CODEINE PHOSPHATE-300MG/PARACETAMOL-30MG/ EVERY 6 HOURS AS NEEDED)
  19. VITAMIN D3 [Concomitant]
     Active Substance: CHOLECALCIFEROL
     Dosage: 2000 IU, DAILY (EVERY DAY)
     Route: 048
  20. ZOLOFT [Concomitant]
     Active Substance: SERTRALINE HYDROCHLORIDE
     Dosage: 200 MG, DAILY (EVERY DAY X 90 DAYS)
     Route: 048

REACTIONS (2)
  - Laryngitis [Unknown]
  - Product prescribing error [Unknown]
